FAERS Safety Report 12787576 (Version 3)
Quarter: 2016Q4

REPORT INFORMATION
  Report Type: Spontaneous
  Country: US (occurrence: US)
  Receive Date: 20160928
  Receipt Date: 20161115
  Transmission Date: 20170207
  Serious: No
  Sender: FDA-Public Use
  Company Number: US-GLAXOSMITHKLINE-US2016139918

PATIENT
  Sex: Female

DRUGS (1)
  1. VENTOLIN HFA [Suspect]
     Active Substance: ALBUTEROL SULFATE
     Indication: PRODUCT USED FOR UNKNOWN INDICATION
     Dosage: 2 PUFF(S), EVERY 4-6 HOURS PRN
     Route: 055
     Dates: start: 20160908

REACTIONS (5)
  - Device use error [Unknown]
  - Product quality issue [Unknown]
  - Drug dose omission [Unknown]
  - Product cleaning inadequate [Unknown]
  - Dyspnoea [Unknown]
